FAERS Safety Report 8910649 (Version 1)
Quarter: 2012Q4

REPORT INFORMATION
  Report Type: Spontaneous
  Country: UG (occurrence: None)
  Receive Date: 20121108
  Receipt Date: 20121108
  Transmission Date: 20130627
  Serious: Yes (Death, Hospitalization)
  Sender: FDA-Public Use
  Company Number: B0842420A

PATIENT
  Age: 35 Year
  Sex: Male

DRUGS (6)
  1. RETROVIR [Suspect]
     Indication: HIV INFECTION
  2. EPIVIR [Suspect]
     Indication: HIV INFECTION
  3. FLUCONAZOLE [Suspect]
     Indication: MENINGITIS CRYPTOCOCCAL
  4. EFAVIRENZ [Suspect]
     Indication: HIV INFECTION
  5. PREDNISOLONE [Suspect]
     Indication: PRODUCT USED FOR UNKNOWN INDICATION
  6. AMPHOTERICIN B [Concomitant]

REACTIONS (5)
  - Immune reconstitution inflammatory syndrome [None]
  - Meningitis cryptococcal [None]
  - Cerebral cyst [None]
  - Hydrocephalus [None]
  - Drug resistance [None]
